FAERS Safety Report 5066419-3 (Version None)
Quarter: 2006Q3

REPORT INFORMATION
  Report Type: 
  Country: None (occurrence: None)
  Receive Date: 20060714
  Receipt Date: 20060520
  Transmission Date: 20061208
  Serious: No
  Sender: FDA-Public Use
  Company Number: 2006SP002128

PATIENT
  Age: 76 Year
  Sex: Female
  Weight: 61.2356 kg

DRUGS (9)
  1. LUNESTA [Suspect]
     Indication: INSOMNIA
     Dosage: 2 MG HS ORAL
     Route: 048
     Dates: start: 20060517
  2. METFORMIN [Concomitant]
  3. GLYBURIDE [Concomitant]
  4. ALAPRYL [Concomitant]
  5. EVISTA [Concomitant]
  6. PROPRANOLOL [Concomitant]
  7. DOXEPIN [Concomitant]
  8. MULTIVITAMIN [Concomitant]
  9. ATORVASTATIN CALCIUM [Concomitant]

REACTIONS (1)
  - INITIAL INSOMNIA [None]
